FAERS Safety Report 6428834-2 (Version None)
Quarter: 2009Q4

REPORT INFORMATION
  Report Type: 
  Country: None (occurrence: None)
  Receive Date: 20091105
  Receipt Date: 20091027
  Transmission Date: 20100525
  Serious: Yes (Hospitalization)
  Sender: FDA-Public Use
  Company Number: BR-BAYER-200923495LA

PATIENT
  Age: 0 Hour
  Sex: Male
  Weight: 3.1 kg

DRUGS (1)
  1. YAZ [Suspect]
     Indication: CONTRACEPTION
     Route: 064
     Dates: start: 20080801, end: 20081101

REACTIONS (2)
  - PLATELET COUNT DECREASED [None]
  - PURPURA [None]
